FAERS Safety Report 4740159-X (Version None)
Quarter: 2005Q3

REPORT INFORMATION
  Report Type: 
  Country: None (occurrence: None)
  Receive Date: 20050810
  Receipt Date: 20050204
  Transmission Date: 20060218
  Serious: Yes (Other)
  Sender: FDA-Public Use
  Company Number: US-GLAXOSMITHKLINE-A0544000A

PATIENT
  Age: 47 Year
  Sex: Female

DRUGS (2)
  1. PAXIL [Suspect]
     Indication: DEPRESSION
     Dosage: 20MG PER DAY
     Route: 048
     Dates: start: 19950101
  2. LEVOXYL [Concomitant]

REACTIONS (7)
  - BALANCE DISORDER [None]
  - DIZZINESS [None]
  - FATIGUE [None]
  - MUSCLE RIGIDITY [None]
  - NAUSEA [None]
  - PARKINSONISM [None]
  - TREMOR [None]
